FAERS Safety Report 16532021 (Version 1)
Quarter: 2019Q3

REPORT INFORMATION
  Report Type: Spontaneous
  Country: ES (occurrence: ES)
  Receive Date: 20190705
  Receipt Date: 20190705
  Transmission Date: 20191004
  Serious: Yes (Hospitalization)
  Sender: FDA-Public Use
  Company Number: ES-TEVA-2019-ES-1041467

PATIENT
  Age: 68 Year
  Sex: Male

DRUGS (2)
  1. QUETIAPINA (1136A) [Suspect]
     Active Substance: QUETIAPINE
     Dates: start: 20181030
  2. CLOPIDOGREL [Interacting]
     Active Substance: CLOPIDOGREL BISULFATE
     Dates: start: 20190201

REACTIONS (2)
  - Leukopenia [Not Recovered/Not Resolved]
  - Drug interaction [Unknown]

NARRATIVE: CASE EVENT DATE: 20190301
